FAERS Safety Report 8174468-1 (Version None)
Quarter: 2012Q1

REPORT INFORMATION
  Report Type: 
  Country: None (occurrence: None)
  Receive Date: 20120229
  Receipt Date: 20120220
  Transmission Date: 20120608
  Serious: Yes (Hospitalization)
  Sender: FDA-Public Use
  Company Number: FR-ASTRAZENECA-2012SE12782

PATIENT
  Age: 24745 Day
  Sex: Female

DRUGS (9)
  1. NEXIUM [Concomitant]
  2. AMLODIPINE BESYLATE [Suspect]
     Indication: HYPERTENSION
     Route: 048
     Dates: end: 20120118
  3. CEFEPIME HYDROCHLORIDE [Suspect]
     Route: 042
     Dates: start: 20120104, end: 20120116
  4. RAMIPRIL [Suspect]
     Indication: HYPERTENSION
     Route: 048
     Dates: end: 20120118
  5. EFFEXOR [Suspect]
     Route: 048
     Dates: end: 20120118
  6. TENORMIN [Suspect]
     Indication: HYPERTENSION
     Route: 048
     Dates: end: 20120118
  7. DUPHALAC [Concomitant]
  8. ASPEGIC 1000 [Concomitant]
  9. AMITRIPTYLINE HCL [Concomitant]

REACTIONS (2)
  - DEPRESSED LEVEL OF CONSCIOUSNESS [None]
  - FALL [None]
